FAERS Safety Report 16643784 (Version 1)
Quarter: 2019Q3

REPORT INFORMATION
  Report Type: Spontaneous
  Country: US (occurrence: US)
  Receive Date: 20190729
  Receipt Date: 20190729
  Transmission Date: 20191004
  Serious: No
  Sender: FDA-Public Use
  Company Number: US-PRINSTON PHARMACEUTICAL INC.-2018PRN00984

PATIENT
  Age: 72 Year
  Sex: Female

DRUGS (4)
  1. UNSPECIFIED BLOOD PRESSURE MEDICATION [Concomitant]
     Active Substance: UNSPECIFIED INGREDIENT
  2. UNSPECIFIED CHOLESTEROL MEDICATION [Concomitant]
     Active Substance: UNSPECIFIED INGREDIENT
  3. CLONAZEPAM. [Suspect]
     Active Substance: CLONAZEPAM
     Indication: MYALGIA
     Dosage: UNK
     Dates: start: 201807
  4. CLONAZEPAM. [Suspect]
     Active Substance: CLONAZEPAM
     Indication: RESTLESS LEGS SYNDROME

REACTIONS (5)
  - Product use in unapproved indication [Not Recovered/Not Resolved]
  - Sleep disorder [Unknown]
  - Product substitution issue [Unknown]
  - Nightmare [Unknown]
  - Drug ineffective for unapproved indication [Unknown]
